FAERS Safety Report 23090320 (Version 1)
Quarter: 2023Q4

REPORT INFORMATION
  Report Type: Spontaneous
  Country: US (occurrence: US)
  Receive Date: 20231020
  Receipt Date: 20231020
  Transmission Date: 20240109
  Serious: No
  Sender: FDA-Public Use
  Company Number: US-PFIZER INC-PV202300170032

PATIENT
  Age: 53 Year
  Sex: Female

DRUGS (2)
  1. IBRANCE [Suspect]
     Active Substance: PALBOCICLIB
     Dosage: 125 MG, 1X/DAY, 21 DAYS ON OF 28 DAY CYCLE
     Route: 048
     Dates: start: 202307
  2. FASLODEX [Concomitant]
     Active Substance: FULVESTRANT

REACTIONS (1)
  - Fatigue [Unknown]
